FAERS Safety Report 15748488 (Version 1)
Quarter: 2018Q4

REPORT INFORMATION
  Report Type: Report from Study
  Country: IT (occurrence: IT)
  Receive Date: 20181221
  Receipt Date: 20181221
  Transmission Date: 20190205
  Serious: Yes (Other)
  Sender: FDA-Public Use
  Company Number: IT-TEVA-2018-IT-989420

PATIENT
  Age: 89 Year
  Sex: Male

DRUGS (8)
  1. MONOKET 60 MG COMPRESSE A RILASCIO MODIFICATO [Concomitant]
  2. TRIPLIAM 5 MG/1,25 MG/5 MG COMPRESSE RIVESTITE CON FILM [Concomitant]
     Dosage: 5 MG / 1.25 MG / 5 MG
  3. LASIX [Concomitant]
     Active Substance: FUROSEMIDE
  4. ASCRIPTIN [Concomitant]
     Active Substance: ASPIRIN
  5. XANAX [Concomitant]
     Active Substance: ALPRAZOLAM
  6. REPAGLINIDE. [Suspect]
     Active Substance: REPAGLINIDE
     Indication: TYPE 2 DIABETES MELLITUS
     Route: 048
  7. FOSTER [Concomitant]
     Active Substance: BECLOMETHASONE\FORMOTEROL
     Dosage: 0,75 MG / ML GOCCFOSTER 100/6 MICROGRAMS FOR DELIVERY PRESSURIZED SOLUTION FOR ORAL INE, SOLUTION
  8. SPIRIVA RESPIMAT 2,5 MICROGRAMMI, SOLUZIONE PER INALAZIONE [Concomitant]

REACTIONS (3)
  - Disorientation [Unknown]
  - Dysarthria [Unknown]
  - Confusional state [Unknown]

NARRATIVE: CASE EVENT DATE: 20180225
